FAERS Safety Report 15580699 (Version 1)
Quarter: 2018Q4

REPORT INFORMATION
  Report Type: Spontaneous
  Country: US (occurrence: US)
  Receive Date: 20181102
  Receipt Date: 20181102
  Transmission Date: 20190205
  Serious: Yes (Disabling)
  Sender: FDA-Public Use
  Company Number: None

PATIENT
  Age: 54 Year
  Sex: Female
  Weight: 69.75 kg

DRUGS (1)
  1. LEVOFLOXACIN 750MG / SUBSTITUTE FOR LEVA QUIN750MG TABLET [Suspect]
     Active Substance: LEVOFLOXACIN
     Indication: PNEUMONIA
     Dosage: ?          QUANTITY:7 TABLET(S);?
     Route: 048
     Dates: start: 20180421, end: 20180427

REACTIONS (2)
  - Nerve injury [None]
  - Tendon pain [None]

NARRATIVE: CASE EVENT DATE: 20180425
